FAERS Safety Report 8610950-8 (Version None)
Quarter: 2012Q3

REPORT INFORMATION
  Report Type: 
  Country: None (occurrence: None)
  Receive Date: 20120809
  Receipt Date: 20120803
  Transmission Date: 20120928
  Serious: Yes (Hospitalization)
  Sender: FDA-Public Use
  Company Number: DSA_58817_2012

PATIENT
  Sex: Male

DRUGS (1)
  1. XENAZINE [Suspect]
     Indication: CHOREA
     Dosage: 12.5 MG 1X/8 HOURS ORAL
     Route: 048
     Dates: start: 20120327

REACTIONS (2)
  - RENAL DISORDER [None]
  - DEHYDRATION [None]
